FAERS Safety Report 7972682-9 (Version None)
Quarter: 2011Q4

REPORT INFORMATION
  Report Type: 
  Country: None (occurrence: None)
  Receive Date: 20111122
  Receipt Date: 20110816
  Transmission Date: 20120403
  Serious: No
  Sender: FDA-Public Use
  Company Number: PHHY2011US45005

PATIENT
  Age: 32 Year
  Sex: Female

DRUGS (4)
  1. MECLIZINE [Concomitant]
  2. MULTI-VITAMINS [Concomitant]
  3. ZOLPIDEM [Concomitant]
  4. GILENYA [Suspect]
     Indication: MULTIPLE SCLEROSIS
     Dosage: 0.5 MG, QD, ORAL
     Route: 048
     Dates: start: 20110427

REACTIONS (3)
  - HEADACHE [None]
  - ALOPECIA [None]
  - BLOOD PRESSURE DECREASED [None]
